FAERS Safety Report 7684662-1 (Version None)
Quarter: 2011Q3

REPORT INFORMATION
  Report Type: 
  Country: None (occurrence: None)
  Receive Date: 20110816
  Receipt Date: 20110810
  Transmission Date: 20111222
  Serious: Yes (Life-Threatening, Hospitalization)
  Sender: FDA-Public Use
  Company Number: BR-BRISTOL-MYERS SQUIBB COMPANY-15002389

PATIENT
  Age: 67 Year
  Sex: Male
  Weight: 58 kg

DRUGS (3)
  1. CISPLATIN [Suspect]
     Indication: NON-SMALL CELL LUNG CANCER
     Dosage: RECENT INF: 10FEB2010 DAY 1 OF 21 DAY CYC
     Route: 042
     Dates: start: 20091021, end: 20100210
  2. CETUXIMAB [Suspect]
     Indication: NON-SMALL CELL LUNG CANCER
     Dosage: 5MG/ML RECENT INF: 17FEB2010
     Route: 042
     Dates: start: 20091021, end: 20100217
  3. VINORELBINE [Suspect]
     Indication: NON-SMALL CELL LUNG CANCER
     Dosage: DAY 1 AND 8 OF 21 DAY CYCLE
     Route: 042
     Dates: start: 20091021, end: 20100217

REACTIONS (2)
  - SEPTIC SHOCK [None]
  - FEBRILE NEUTROPENIA [None]
